FAERS Safety Report 20120477 (Version 1)
Quarter: 2021Q4

REPORT INFORMATION
  Report Type: Report from Study
  Country: NL (occurrence: NL)
  Receive Date: 20211126
  Receipt Date: 20211126
  Transmission Date: 20220303
  Serious: Yes (Life-Threatening, Other)
  Sender: FDA-Public Use
  Company Number: NL-GUERBET-NL-20210030

PATIENT

DRUGS (3)
  1. ROPIVACAINE [Suspect]
     Active Substance: ROPIVACAINE
     Indication: Sclerotherapy
     Dosage: UNK
     Route: 065
  2. POLIDOCANOL [Suspect]
     Active Substance: POLIDOCANOL
     Indication: Sclerotherapy
     Dosage: UNK
     Route: 065
  3. IOBITRIDOL [Suspect]
     Active Substance: IOBITRIDOL
     Indication: Sclerotherapy
     Dosage: 2 MILLILITER, QD
     Route: 065

REACTIONS (3)
  - Hypotension [Recovered/Resolved]
  - Product use issue [Recovered/Resolved]
  - Product use in unapproved indication [Recovered/Resolved]
